FAERS Safety Report 5912598-2 (Version None)
Quarter: 2008Q3

REPORT INFORMATION
  Report Type: 
  Country: None (occurrence: None)
  Receive Date: 20080909
  Receipt Date: 20080505
  Transmission Date: 20090109
  Serious: Yes (Death)
  Sender: FDA-Public Use
  Company Number: 163-20785-08040755

PATIENT
  Sex: Male

DRUGS (3)
  1. THALOMID [Suspect]
     Indication: MYELOFIBROSIS
     Dosage: 50-100MG, 1 IN 1 D, ORAL
     Route: 048
     Dates: start: 20030618, end: 20031201
  2. THALOMID [Suspect]
     Indication: MYELOFIBROSIS
     Dosage: 50-100MG, 1 IN 1 D, ORAL
     Route: 048
     Dates: start: 20040114, end: 20071101
  3. THALOMID [Suspect]

REACTIONS (1)
  - DEATH [None]
